FAERS Safety Report 4819455-3 (Version None)
Quarter: 2005Q4

REPORT INFORMATION
  Report Type: 
  Country: None (occurrence: None)
  Receive Date: 20051031
  Receipt Date: 20050720
  Transmission Date: 20060501
  Serious: No
  Sender: FDA-Public Use
  Company Number: 2005PV000478

PATIENT
  Age: 66 Year
  Sex: Male
  Weight: 102.9665 kg

DRUGS (13)
  1. SYMLIN [Suspect]
     Indication: DIABETES MELLITUS NON-INSULIN-DEPENDENT
  2. SYMLIN [Suspect]
     Dosage: 150 MCG TID SC
     Route: 058
     Dates: start: 20050706, end: 20050101
  3. SYMLIN [Suspect]
     Dosage: 120 MCG TID SC
     Route: 058
     Dates: start: 20050101, end: 20050101
  4. SYMLIN [Suspect]
     Dosage: 30 MCG TID SC
     Route: 058
     Dates: start: 20050801
  5. LANTUS [Concomitant]
  6. HUMALOG [Concomitant]
  7. ZETIA [Concomitant]
  8. ACTOS [Concomitant]
  9. PREVACID [Concomitant]
  10. ASPIRIN [Concomitant]
  11. AVALIDE [Concomitant]
  12. AMBIEN [Concomitant]
  13. MOBIC [Concomitant]

REACTIONS (6)
  - BLOOD GLUCOSE INCREASED [None]
  - DECREASED APPETITE [None]
  - INJECTION SITE PAIN [None]
  - NAUSEA [None]
  - THERAPEUTIC RESPONSE UNEXPECTED [None]
  - WEIGHT DECREASED [None]
